FAERS Safety Report 18638552 (Version 1)
Quarter: 2020Q4

REPORT INFORMATION
  Report Type: Spontaneous
  Country: CN (occurrence: CN)
  Receive Date: 20201218
  Receipt Date: 20201218
  Transmission Date: 20210114
  Serious: Yes (Other)
  Sender: FDA-Public Use
  Company Number: CN-PFIZER INC-2020496878

PATIENT
  Age: 28 Year
  Sex: Male
  Weight: 86 kg

DRUGS (1)
  1. METHYLPREDNISOLONE SODIUM SUCCINATE. [Suspect]
     Active Substance: METHYLPREDNISOLONE SODIUM SUCCINATE
     Indication: ANTI-INFECTIVE THERAPY
     Dosage: 40 MG, 1X/DAY
     Route: 041
     Dates: start: 20201004, end: 20201004

REACTIONS (1)
  - White blood cell count increased [Recovering/Resolving]

NARRATIVE: CASE EVENT DATE: 20201009
